FAERS Safety Report 24603402 (Version 1)
Quarter: 2024Q4

REPORT INFORMATION
  Report Type: Spontaneous
  Country: US (occurrence: US)
  Receive Date: 20241111
  Receipt Date: 20241111
  Transmission Date: 20250114
  Serious: No
  Sender: BAYER HEALTHCARE LLC
  Company Number: US-BAYER-2024A160164

PATIENT
  Age: 59 Year
  Sex: Male

DRUGS (2)
  1. ALEVE [Suspect]
     Active Substance: NAPROXEN SODIUM
     Indication: Pain
     Dosage: 2 DF, BID
     Route: 048
     Dates: start: 20241101, end: 20241108
  2. ALEVE [Suspect]
     Active Substance: NAPROXEN SODIUM
     Indication: Arthralgia

REACTIONS (2)
  - Incorrect dose administered [None]
  - Drug ineffective [None]

NARRATIVE: CASE EVENT DATE: 20241101
